FAERS Safety Report 25881708 (Version 1)
Quarter: 2025Q4

REPORT INFORMATION
  Report Type: Spontaneous
  Country: US (occurrence: US)
  Receive Date: 20251005
  Receipt Date: 20251005
  Transmission Date: 20260117
  Serious: No
  Sender: SANOFI AVENTIS
  Company Number: US-SA-2025SA294113

PATIENT
  Sex: Male

DRUGS (7)
  1. DUPIXENT [Suspect]
     Active Substance: DUPILUMAB
     Indication: Asthma
     Dosage: 300 MG, QOW
     Route: 058
  2. MUCUS RELIEF [Concomitant]
     Active Substance: GUAIFENESIN
  3. LORATADINE [Concomitant]
     Active Substance: LORATADINE
  4. POTASSIUM [Concomitant]
     Active Substance: POTASSIUM
  5. OMEPRAZOLE [Concomitant]
     Active Substance: OMEPRAZOLE
  6. LORATADINE [Concomitant]
     Active Substance: LORATADINE
  7. AMLODIPINE [Concomitant]
     Active Substance: AMLODIPINE BESYLATE

REACTIONS (6)
  - Emphysema [Unknown]
  - Dyspnoea [Unknown]
  - Initial insomnia [Unknown]
  - Fatigue [Unknown]
  - Restlessness [Unknown]
  - Bradykinesia [Unknown]
